FAERS Safety Report 10259488 (Version 1)
Quarter: 2014Q2

REPORT INFORMATION
  Report Type: Spontaneous
  Country: GB (occurrence: GB)
  Receive Date: 20140625
  Receipt Date: 20140625
  Transmission Date: 20141212
  Serious: Yes (Hospitalization)
  Sender: FDA-Public Use
  Company Number: GB-PFIZER INC-2014172911

PATIENT
  Sex: Male

DRUGS (12)
  1. GABAPENTIN [Suspect]
     Indication: NEURALGIA
     Dosage: 300 MG, 3X/DAY
     Route: 048
     Dates: start: 20140522
  2. CARVEDILOL [Concomitant]
     Route: 048
  3. MACROGOL [Concomitant]
     Dosage: UNK
  4. ORAMORPH [Concomitant]
     Route: 048
  5. PARACETAMOL [Concomitant]
     Dosage: UNK
  6. ZOPICLONE [Concomitant]
     Dosage: UNK
  7. CITALOPRAM [Concomitant]
     Dosage: UNK
  8. HYDROXYCARBAMIDE [Concomitant]
     Dosage: UNK
  9. LANSOPRAZOLE [Concomitant]
     Dosage: UNK
  10. METOCLOPRAMIDE [Concomitant]
     Dosage: UNK
  11. WARFARIN [Concomitant]
     Dosage: UNK
  12. ZOMORPH [Concomitant]
     Dosage: UNK

REACTIONS (2)
  - Abdominal pain [Recovering/Resolving]
  - Abdominal distension [Recovering/Resolving]
